FAERS Safety Report 18928593 (Version 2)
Quarter: 2021Q2

REPORT INFORMATION
  Report Type: Spontaneous
  Country: US (occurrence: US)
  Receive Date: 20210223
  Receipt Date: 20210602
  Transmission Date: 20210717
  Serious: Yes (Death)
  Sender: FDA-Public Use
  Company Number: US-JNJFOC-20210236689

PATIENT
  Age: 57 Year
  Sex: Female

DRUGS (1)
  1. SIMPONI [Suspect]
     Active Substance: GOLIMUMAB
     Indication: COLITIS ULCERATIVE
     Route: 058
     Dates: start: 202001, end: 202101

REACTIONS (1)
  - Death [Fatal]
